FAERS Safety Report 20054430 (Version 1)
Quarter: 2021Q4

REPORT INFORMATION
  Report Type: Spontaneous
  Country: US (occurrence: None)
  Receive Date: 20211109
  Receipt Date: 20211109
  Transmission Date: 20220303
  Serious: No
  Sender: FDA-Public Use
  Company Number: None

PATIENT
  Sex: Male

DRUGS (3)
  1. TOBRAMYCIN [Suspect]
     Active Substance: TOBRAMYCIN
     Indication: Pneumonia
     Dosage: FREQUENCY : TWICE A DAY;?
     Route: 055
     Dates: start: 201903
  2. TOBRAMYCIN [Suspect]
     Active Substance: TOBRAMYCIN
     Indication: Osteomyelitis
  3. TOBRAMYCIN [Suspect]
     Active Substance: TOBRAMYCIN
     Indication: Bacterial infection

REACTIONS (1)
  - Haemorrhage [None]
